FAERS Safety Report 5460716-5 (Version None)
Quarter: 2007Q3

REPORT INFORMATION
  Report Type: 
  Country: None (occurrence: None)
  Receive Date: 20070919
  Receipt Date: 20070912
  Transmission Date: 20080115
  Serious: Yes (Other)
  Sender: FDA-Public Use
  Company Number: US-MERCK-0709USA01919

PATIENT
  Sex: Female

DRUGS (2)
  1. ZOLINZA [Suspect]
     Route: 048
  2. ZOLINZA [Suspect]
     Route: 048

REACTIONS (2)
  - ALANINE AMINOTRANSFERASE INCREASED [None]
  - MUCOSAL INFLAMMATION [None]
